FAERS Safety Report 13124854 (Version 4)
Quarter: 2018Q3

REPORT INFORMATION
  Report Type: Report from Study
  Country: US (occurrence: US)
  Receive Date: 20170118
  Receipt Date: 20180918
  Transmission Date: 20181010
  Serious: Yes (Other)
  Sender: FDA-Public Use
  Company Number: US-UCBSA-2017001777

PATIENT
  Age: 45 Year
  Sex: Female

DRUGS (2)
  1. CERTOLIZUMAB PEGOL [Suspect]
     Active Substance: CERTOLIZUMAB PEGOL
     Indication: CROHN^S DISEASE
     Dosage: 400 MG, EV 4 WEEKS (NDC# 50474?700?62)
     Route: 058
     Dates: start: 20160212
  2. CERTOLIZUMAB PEGOL [Suspect]
     Active Substance: CERTOLIZUMAB PEGOL
     Dosage: 400 MG, EV 2 WEEKS(QOW)
     Route: 058
     Dates: start: 20180427

REACTIONS (3)
  - Off label use [Unknown]
  - Pyrexia [Not Recovered/Not Resolved]
  - Ileostomy [Not Recovered/Not Resolved]

NARRATIVE: CASE EVENT DATE: 20170106
